FAERS Safety Report 4531979-5 (Version None)
Quarter: 2004Q4

REPORT INFORMATION
  Report Type: 
  Country: None (occurrence: None)
  Receive Date: 20041217
  Receipt Date: 20041011
  Transmission Date: 20050328
  Serious: Yes (Hospitalization)
  Sender: FDA-Public Use
  Company Number: 2004-BE-00099BE

PATIENT
  Sex: Female

DRUGS (1)
  1. MOVALIS (MELOXICAM) (MELOXICAM) [Suspect]
     Dosage: NR

REACTIONS (1)
  - COLITIS ULCERATIVE [None]
